FAERS Safety Report 23614106 (Version 2)
Quarter: 2024Q1

REPORT INFORMATION
  Report Type: Report from Study
  Country: US (occurrence: US)
  Receive Date: 20240310
  Receipt Date: 20240325
  Transmission Date: 20240409
  Serious: Yes (Hospitalization, Other)
  Sender: FDA-Public Use
  Company Number: US-TAKEDA-2024TUS010853

PATIENT
  Age: 63 Year
  Sex: Female
  Weight: 61.188 kg

DRUGS (2)
  1. FRUQUINTINIB [Suspect]
     Active Substance: FRUQUINTINIB
     Indication: Colon cancer
     Dosage: 5 MILLIGRAM
     Route: 048
     Dates: start: 20240121
  2. FRUQUINTINIB [Suspect]
     Active Substance: FRUQUINTINIB
     Dosage: 4 MILLIGRAM, QD
     Route: 048
     Dates: start: 20240121

REACTIONS (10)
  - Pulmonary oedema [Unknown]
  - Fatigue [Unknown]
  - Dry skin [Unknown]
  - Oral discomfort [Unknown]
  - Illness [Unknown]
  - Tooth fracture [Unknown]
  - Hepatic pain [Unknown]
  - Breast pain [Unknown]
  - Pain [Unknown]
  - Product after taste [Unknown]

NARRATIVE: CASE EVENT DATE: 20240101
